FAERS Safety Report 5658839-0 (Version None)
Quarter: 2008Q1

REPORT INFORMATION
  Report Type: 
  Country: None (occurrence: None)
  Receive Date: 20080310
  Receipt Date: 20070726
  Transmission Date: 20080703
  Serious: No
  Sender: FDA-Public Use
  Company Number: US-BAYER-200711245BCC

PATIENT
  Age: 14 Year
  Sex: Male
  Weight: 93 kg

DRUGS (1)
  1. ALEVE (CAPLET) [Suspect]
     Indication: LIMB INJURY
     Route: 048

REACTIONS (1)
  - DRUG SCREEN POSITIVE [None]
